FAERS Safety Report 13463832 (Version 1)
Quarter: 2017Q2

REPORT INFORMATION
  Report Type: Spontaneous
  Country: US (occurrence: US)
  Receive Date: 20170420
  Receipt Date: 20170420
  Transmission Date: 20170830
  Serious: Yes (Hospitalization, Other)
  Sender: FDA-Public Use
  Company Number: US-ROCHE-714506

PATIENT
  Age: 20 Year
  Sex: Female
  Weight: 59 kg

DRUGS (1)
  1. ACCUTANE [Suspect]
     Active Substance: ISOTRETINOIN
     Indication: ACNE
     Route: 065
     Dates: start: 19960227, end: 19960730

REACTIONS (9)
  - Crohn^s disease [Unknown]
  - Inflammatory bowel disease [Unknown]
  - Colitis [Unknown]
  - Lip dry [Unknown]
  - Osteopenia [Unknown]
  - Dry skin [Unknown]
  - Back pain [Unknown]
  - Dry eye [Unknown]
  - Amenorrhoea [Unknown]

NARRATIVE: CASE EVENT DATE: 19960322
